FAERS Safety Report 15796042 (Version 3)
Quarter: 2019Q2

REPORT INFORMATION
  Report Type: Spontaneous
  Country: US (occurrence: US)
  Receive Date: 20190107
  Receipt Date: 20190502
  Transmission Date: 20190711
  Serious: No
  Sender: FDA-Public Use
  Company Number: US-CELGENEUS-USA-20190100679

PATIENT
  Age: 84 Year
  Sex: Female
  Weight: 65.38 kg

DRUGS (2)
  1. OTEZLA [Suspect]
     Active Substance: APREMILAST
     Indication: PSORIASIS
     Dosage: 60 MILLIGRAM
     Route: 048
     Dates: start: 20170802
  2. PREDNISONE. [Suspect]
     Active Substance: PREDNISONE
     Indication: BLINDNESS
     Route: 065
     Dates: start: 201609, end: 201809

REACTIONS (2)
  - Weight decreased [Recovered/Resolved]
  - Weight increased [Recovered/Resolved]

NARRATIVE: CASE EVENT DATE: 201809
